FAERS Safety Report 22096136 (Version 1)
Quarter: 2023Q1

REPORT INFORMATION
  Report Type: Spontaneous
  Country: GB (occurrence: GB)
  Receive Date: 20230315
  Receipt Date: 20230315
  Transmission Date: 20230417
  Serious: No
  Sender: FDA-Public Use
  Company Number: None

PATIENT
  Age: 46 Year
  Sex: Male

DRUGS (12)
  1. TOLVAPTAN [Suspect]
     Active Substance: TOLVAPTAN
     Indication: Congenital cystic kidney disease
     Dosage: 30 MILLIGRAM, TABLET
     Route: 048
     Dates: start: 20180403
  2. TOLVAPTAN [Suspect]
     Active Substance: TOLVAPTAN
     Dosage: 60 MILLIGRAM, TABLET
     Route: 048
     Dates: start: 20180403
  3. TOLVAPTAN [Suspect]
     Active Substance: TOLVAPTAN
     Dosage: 30 MILLIGRAM, TABLET
     Route: 048
     Dates: start: 20180501
  4. TOLVAPTAN [Suspect]
     Active Substance: TOLVAPTAN
     Dosage: 45 MILLIGRAM, TABLET
     Route: 048
     Dates: start: 20180206
  5. TOLVAPTAN [Suspect]
     Active Substance: TOLVAPTAN
     Dosage: 15 MILLIGRAM, TABLET
     Route: 048
     Dates: start: 20180206
  6. TOLVAPTAN [Suspect]
     Active Substance: TOLVAPTAN
     Dosage: 90 MILLIGRAM, TABLET
     Route: 048
     Dates: start: 20180501
  7. CANDESARTAN [Concomitant]
     Active Substance: CANDESARTAN
     Indication: Product used for unknown indication
     Dosage: 8 MILLIGRAM, QD
     Route: 048
     Dates: start: 20220308, end: 20220920
  8. CANDESARTAN [Concomitant]
     Active Substance: CANDESARTAN
     Dosage: 16 MILLIGRAM, 1 DAY
     Route: 048
     Dates: start: 20221115
  9. CANDESARTAN [Concomitant]
     Active Substance: CANDESARTAN
     Dosage: 12 MILLIGRAM, QD
     Route: 048
     Dates: start: 20220920, end: 20221115
  10. CANDESARTAN [Concomitant]
     Active Substance: CANDESARTAN
     Dosage: 6 MILLIGRAM, QD
     Route: 048
     Dates: start: 20191203, end: 20220308
  11. CANDESARTAN [Concomitant]
     Active Substance: CANDESARTAN
     Dosage: 4 MILLIGRAM, QD
     Route: 048
     Dates: start: 20070702, end: 20191203
  12. LEVOTHYROXINE [Concomitant]
     Active Substance: LEVOTHYROXINE
     Indication: Product used for unknown indication
     Dosage: 75 MILLIGRAM, QD
     Route: 048
     Dates: start: 20160415

REACTIONS (3)
  - Dehydration [Recovered/Resolved]
  - Aspartate aminotransferase increased [Recovered/Resolved]
  - Dehydration [Recovered/Resolved]

NARRATIVE: CASE EVENT DATE: 20180306
